FAERS Safety Report 16545081 (Version 1)
Quarter: 2019Q3

REPORT INFORMATION
  Report Type: Report from Study
  Country: IT (occurrence: IT)
  Receive Date: 20190709
  Receipt Date: 20190709
  Transmission Date: 20191004
  Serious: Yes (Other)
  Sender: FDA-Public Use
  Company Number: IT-BAYER-2019-128483

PATIENT
  Age: 55 Year
  Sex: Female

DRUGS (3)
  1. FUROSEMIDE. [Concomitant]
     Active Substance: FUROSEMIDE
     Dosage: UNK
  2. ENALAPRIL [Concomitant]
     Active Substance: ENALAPRIL
     Dosage: UNK
  3. MOXIFLOXACIN. [Suspect]
     Active Substance: MOXIFLOXACIN
     Indication: SOFT TISSUE INFECTION
     Dosage: 1 DF
     Route: 048
     Dates: start: 20190520, end: 20190520

REACTIONS (3)
  - Dyspnoea [Recovering/Resolving]
  - Vomiting [Recovering/Resolving]
  - Dysentery [Recovering/Resolving]

NARRATIVE: CASE EVENT DATE: 20190520
